FAERS Safety Report 18389509 (Version 2)
Quarter: 2020Q4

REPORT INFORMATION
  Report Type: Spontaneous
  Country: PT (occurrence: PT)
  Receive Date: 20201015
  Receipt Date: 20201207
  Transmission Date: 20210114
  Serious: Yes (Hospitalization, Other)
  Sender: FDA-Public Use
  Company Number: NVSC2020PT237412

PATIENT
  Age: 25 Year
  Sex: Female

DRUGS (11)
  1. AMOXICILLIN SODIUM,POTASSIUM CLAVULANATE [Suspect]
     Active Substance: AMOXICILLIN\CLAVULANATE POTASSIUM
     Indication: ESCHERICHIA PYELONEPHRITIS
     Dosage: UNK
     Route: 065
     Dates: start: 2010
  2. IRON [Concomitant]
     Active Substance: IRON
     Indication: PRODUCT USED FOR UNKNOWN INDICATION
     Dosage: UNK
     Route: 065
  3. DARBEPOETIN ALFA [Suspect]
     Active Substance: DARBEPOETIN ALFA
     Indication: CHRONIC KIDNEY DISEASE
     Dosage: 10 MICROGRAM, QW
     Route: 065
  4. AMLODIPINE [Suspect]
     Active Substance: AMLODIPINE BESYLATE
     Indication: HYPERTENSION
     Dosage: UNK
     Route: 065
  5. CEFTRIAXONE. [Suspect]
     Active Substance: CEFTRIAXONE
     Indication: ESCHERICHIA PYELONEPHRITIS
     Dosage: UNK
     Route: 065
     Dates: start: 2010
  6. BETAMETHASONE DIPROPIONATE. [Suspect]
     Active Substance: BETAMETHASONE DIPROPIONATE
     Indication: MATERNAL THERAPY TO ENHANCE FOETAL LUNG MATURITY
     Dosage: UNK
     Route: 065
     Dates: start: 2010
  7. AMLODIPINE [Suspect]
     Active Substance: AMLODIPINE BESYLATE
     Indication: HYPERVOLAEMIA
  8. ACETYLSALICYLIC ACID [Suspect]
     Active Substance: ASPIRIN
     Indication: CHRONIC KIDNEY DISEASE
     Dosage: 100 MG, QD
     Route: 065
  9. METHYLDOPA. [Suspect]
     Active Substance: METHYLDOPA
     Indication: CHRONIC KIDNEY DISEASE
     Dosage: 1500 MG, QD
     Route: 065
  10. METHYLDOPA. [Suspect]
     Active Substance: METHYLDOPA
     Dosage: 500 MG QD
     Route: 065
  11. FOLIC ACID. [Suspect]
     Active Substance: FOLIC ACID
     Indication: CHRONIC KIDNEY DISEASE
     Dosage: 5 MILLIGRAM ID
     Route: 065

REACTIONS (11)
  - Renal impairment [Unknown]
  - Hypervolaemia [Unknown]
  - Hepatocellular injury [Unknown]
  - Drug-induced liver injury [Unknown]
  - Product use in unapproved indication [Unknown]
  - Maternal exposure during pregnancy [Unknown]
  - Respiratory tract infection [Unknown]
  - Premature delivery [Unknown]
  - Respiratory failure [Unknown]
  - Hypertension [Unknown]
  - Hyperbilirubinaemia [Unknown]

NARRATIVE: CASE EVENT DATE: 201007
